FAERS Safety Report 5992834-7 (Version None)
Quarter: 2008Q4

REPORT INFORMATION
  Report Type: 
  Country: None (occurrence: None)
  Receive Date: 20081212
  Receipt Date: 20081203
  Transmission Date: 20090506
  Serious: Yes (Other)
  Sender: FDA-Public Use
  Company Number: US-RB-007411-08

PATIENT
  Age: 13 Year
  Sex: Male

DRUGS (3)
  1. DELSYM CHILDREN'S ORANGE [Suspect]
     Dosage: 2 TSP PER DOSE, ONCE OR TWICE A DAY.
     Route: 048
     Dates: start: 20081130
  2. ADDERALL 10 [Concomitant]
     Route: 048
  3. TRAZODONE HCL [Concomitant]

REACTIONS (5)
  - CHEST DISCOMFORT [None]
  - EYE SWELLING [None]
  - LIP SWELLING [None]
  - SWELLING [None]
  - URTICARIA [None]
